FAERS Safety Report 11897902 (Version 1)
Quarter: 2016Q1

REPORT INFORMATION
  Report Type: Report from Study
  Country: DE (occurrence: DE)
  Receive Date: 20160108
  Receipt Date: 20160108
  Transmission Date: 20160526
  Serious: Yes (Hospitalization)
  Sender: FDA-Public Use
  Company Number: DE-ROCHE-1689877

PATIENT
  Sex: Female
  Weight: 60 kg

DRUGS (3)
  1. BEVACIZUMAB [Suspect]
     Active Substance: BEVACIZUMAB
     Indication: OVARIAN CANCER RECURRENT
     Dosage: LAST DOSE PRIOR TO SAE: 29/JAN/2015
     Route: 042
     Dates: start: 20140807
  2. GEMCITABINE [Suspect]
     Active Substance: GEMCITABINE\GEMCITABINE HYDROCHLORIDE
     Indication: OVARIAN CANCER RECURRENT
     Dosage: DAY1 AND DAY8?DATE OF LAST DOSE PRIOR TO SAE: 04/DEC/2014
     Route: 042
     Dates: start: 20140807
  3. CARBOPLATIN. [Suspect]
     Active Substance: CARBOPLATIN
     Indication: OVARIAN CANCER RECURRENT
     Dosage: DATE OF LAST DOSE PRIOR TO SAE: 27/NOV/2014
     Route: 042
     Dates: start: 20140807

REACTIONS (1)
  - Peripheral artery stenosis [Recovered/Resolved]

NARRATIVE: CASE EVENT DATE: 20150209
